FAERS Safety Report 23271791 (Version 1)
Quarter: 2023Q4

REPORT INFORMATION
  Report Type: Spontaneous
  Country: US (occurrence: US)
  Receive Date: 20231207
  Receipt Date: 20231207
  Transmission Date: 20240109
  Serious: Yes (Hospitalization, Other)
  Sender: FDA-Public Use
  Company Number: US-PFIZER INC-202300426671

PATIENT
  Age: 8 Year
  Sex: Female

DRUGS (1)
  1. OXBRYTA [Suspect]
     Active Substance: VOXELOTOR
     Indication: Sickle cell disease
     Dosage: 900 MG, DAILY (3 TABLETS ONCE A DAY BY MOUTH IN APPLEJUICE AT ROOM TEMPERATURE)
     Route: 048

REACTIONS (6)
  - Adenotonsillectomy [Recovered/Resolved]
  - Pain [Recovered/Resolved]
  - Haemoglobin decreased [Recovering/Resolving]
  - Dehydration [Unknown]
  - Weight decreased [Unknown]
  - Carbon dioxide decreased [Unknown]

NARRATIVE: CASE EVENT DATE: 20231025
